FAERS Safety Report 7088443-1 (Version None)
Quarter: 2010Q4

REPORT INFORMATION
  Report Type: 
  Country: None (occurrence: None)
  Receive Date: 20101108
  Receipt Date: 20101028
  Transmission Date: 20110411
  Serious: Yes (Death, Other)
  Sender: FDA-Public Use
  Company Number: CN-ROCHE-737793

PATIENT

DRUGS (5)
  1. MYCOPHENOLATE MOFETIL [Suspect]
     Indication: PROPHYLAXIS AGAINST TRANSPLANT REJECTION
     Route: 048
  2. CYCLOSPORINE [Suspect]
     Indication: PROPHYLAXIS AGAINST TRANSPLANT REJECTION
     Route: 065
  3. PREDNISONE [Suspect]
     Indication: PROPHYLAXIS AGAINST TRANSPLANT REJECTION
     Route: 065
  4. GANCYKLOVIR [Concomitant]
     Indication: ANTIVIRAL PROPHYLAXIS
     Route: 041
  5. GANCYKLOVIR [Concomitant]
     Dosage: THE PLAN WAS 3 MONTHS.
     Route: 048

REACTIONS (4)
  - CYTOMEGALOVIRUS INFECTION [None]
  - MULTI-ORGAN FAILURE [None]
  - PNEUMONIA CYTOMEGALOVIRAL [None]
  - RENAL FAILURE [None]
